FAERS Safety Report 9510161 (Version 1)
Quarter: 2013Q3

REPORT INFORMATION
  Report Type: Spontaneous
  Country: US (occurrence: US)
  Receive Date: 20130909
  Receipt Date: 20130909
  Transmission Date: 20140515
  Serious: No
  Sender: FDA-Public Use
  Company Number: US-BRISTOL-MYERS SQUIBB COMPANY-18732362

PATIENT
  Age: 84 Year
  Sex: Male

DRUGS (13)
  1. ABILIFY TABS [Suspect]
     Dosage: PHARMACY DISCARD DATE:30OCT2012
  2. COREG [Concomitant]
     Dosage: COREG CR 20MG DAILY
  3. AMIODARONE [Concomitant]
     Dosage: 100MG HALF TABLET IN MORNING AND HALF TABLET IN THE EVENING.
  4. ECOTRIN [Concomitant]
  5. ATORVASTATIN [Concomitant]
  6. DIGOXIN [Concomitant]
  7. FISH OIL [Concomitant]
  8. FUROSEMIDE [Concomitant]
     Dosage: EVERY OTHER DAY
  9. LOSARTAN [Concomitant]
  10. PLAVIX [Concomitant]
  11. ZOLOFT [Concomitant]
  12. BUSPAR [Concomitant]
     Dosage: MORNING AND EVENING
  13. SPIRONOLACTONE [Concomitant]

REACTIONS (3)
  - Chills [Recovered/Resolved]
  - Hyperhidrosis [Recovered/Resolved]
  - Expired drug administered [Unknown]
